FAERS Safety Report 21933341 (Version 1)
Quarter: 2023Q1

REPORT INFORMATION
  Report Type: Spontaneous
  Country: JP (occurrence: JP)
  Receive Date: 20230131
  Receipt Date: 20230131
  Transmission Date: 20230418
  Serious: Yes (Other)
  Sender: FDA-Public Use
  Company Number: JP-KYOWAKIRIN-2019AKK019777

PATIENT
  Age: 39 Year
  Sex: Female

DRUGS (29)
  1. ROMIPLOSTIM [Suspect]
     Active Substance: ROMIPLOSTIM
     Indication: Platelet count decreased
     Dosage: 5 MILLIGRAM/KILOGRAM
     Route: 058
     Dates: start: 20191206
  2. CYCLOPHOSPHAMIDE [Suspect]
     Active Substance: CYCLOPHOSPHAMIDE
     Indication: Myelodysplastic syndrome
     Dosage: UNK
     Route: 065
     Dates: start: 20191129, end: 20191130
  3. FILGRASTIM [Concomitant]
     Active Substance: FILGRASTIM
     Indication: Colony stimulating factor therapy
     Dosage: 525 UG/M2, QD
     Route: 041
     Dates: start: 20191210
  4. FILGRASTIM [Concomitant]
     Active Substance: FILGRASTIM
     Indication: Colony stimulating factor therapy
  5. MYCOPHENOLATE MOFETIL [Concomitant]
     Active Substance: MYCOPHENOLATE MOFETIL
     Indication: Prophylaxis against graft versus host disease
     Dosage: 1000 MILLIGRAM, BID
     Route: 048
     Dates: start: 20191204
  6. CYCLOSPORINE [Concomitant]
     Active Substance: CYCLOSPORINE
     Indication: Prophylaxis against graft versus host disease
     Dosage: 200 MILLIGRAM
     Route: 041
     Dates: start: 20191204
  7. LEVOFLOXACIN HEMIHYDRATE [Concomitant]
     Active Substance: LEVOFLOXACIN
     Indication: Infection prophylaxis
     Dosage: 500 MILLIGRAM, QD
     Route: 048
     Dates: end: 20191211
  8. ACYCLOVIR [Concomitant]
     Active Substance: ACYCLOVIR
     Indication: Antiviral prophylaxis
     Dosage: 200 MILLIGRAM, TID
     Route: 048
     Dates: start: 20191128
  9. URSODIOL [Concomitant]
     Active Substance: URSODIOL
     Indication: Hepatobiliary disorder prophylaxis
     Dosage: 200 MILLIGRAM, TID
     Route: 048
     Dates: start: 20191128
  10. LANSOPRAZOLE [Concomitant]
     Active Substance: LANSOPRAZOLE
     Indication: Gastritis
     Dosage: 15 MILLIGRAM, QD
     Route: 048
     Dates: start: 20191128
  11. PENTAMIDINE [Concomitant]
     Active Substance: PENTAMIDINE
     Indication: Antifungal prophylaxis
     Dosage: 1 DOSAGE FORM
     Dates: start: 20191129
  12. MICAFUNGIN SODIUM [Concomitant]
     Active Substance: MICAFUNGIN SODIUM
     Indication: Infection prophylaxis
     Dosage: 50 MILLIGRAM, QD
     Route: 041
     Dates: start: 20191128
  13. LEUPLIN [Concomitant]
     Active Substance: LEUPROLIDE ACETATE
     Indication: Menstrual cycle management
     Dosage: 1.88 MILLIGRAM, Q4WK
     Route: 058
     Dates: start: 20191121
  14. SODIUM GUALENATE MONOHYDRATE [Concomitant]
     Active Substance: SODIUM GUALENATE MONOHYDRATE
     Indication: Stomatitis
     Dosage: UNK, SEVERAL TIMES PER DAY
     Route: 049
     Dates: start: 20191120
  15. XYLOCAINE [Concomitant]
     Active Substance: LIDOCAINE HYDROCHLORIDE
     Indication: Stomatitis
     Dosage: UNK, SEVERAL TIMES PER DAY
     Route: 049
     Dates: start: 20191120
  16. GLYCERIN [Concomitant]
     Active Substance: GLYCERIN
     Indication: Stomatitis
     Dosage: UNK, SEVERAL TIMES PER DAY
     Route: 049
     Dates: start: 20191206
  17. AMINO ACIDS\DEXTROSE\ELECTROLYTES NOS\MINERALS\VITAMINS [Concomitant]
     Active Substance: AMINO ACIDS\DEXTROSE\ELECTROLYTES NOS\MINERALS\VITAMINS
     Indication: Nausea
     Dosage: 1000 MILLILITER
     Route: 041
     Dates: start: 20191007
  18. CHLORPROMAZINE [Concomitant]
     Active Substance: CHLORPROMAZINE
     Indication: Insomnia
     Dosage: 10 MILLIGRAM
     Route: 030
     Dates: start: 20191203
  19. FUROSEMIDE [Concomitant]
     Active Substance: FUROSEMIDE
     Indication: Oedema
     Dosage: 20 MILLIGRAM
     Route: 041
     Dates: start: 20191129
  20. Posterisan forte [Concomitant]
     Indication: Proctalgia
     Dosage: 1 DOSAGE FORM
     Route: 061
     Dates: start: 20191121
  21. CALONAL [Concomitant]
     Active Substance: ACETAMINOPHEN
     Indication: Arthralgia
     Dosage: 400 MILLIGRAM, TID
     Route: 048
     Dates: start: 20191202
  22. CALONAL [Concomitant]
     Active Substance: ACETAMINOPHEN
     Indication: Abdominal pain
  23. CALONAL [Concomitant]
     Active Substance: ACETAMINOPHEN
     Indication: Puncture site pain
  24. CALONAL [Concomitant]
     Active Substance: ACETAMINOPHEN
     Indication: Arthralgia
  25. ACETAMINOPHEN [Concomitant]
     Active Substance: ACETAMINOPHEN
     Indication: Abdominal pain
     Dosage: 600 MILLIGRAM, PRN
     Route: 041
     Dates: start: 20191209
  26. ACETAMINOPHEN [Concomitant]
     Active Substance: ACETAMINOPHEN
     Indication: Bone pain
  27. SOLU-CORTEF [Concomitant]
     Active Substance: HYDROCORTISONE SODIUM SUCCINATE
     Indication: Allergy prophylaxis
     Dosage: 100 MILLIGRAM
     Route: 041
     Dates: start: 20191210
  28. POLARAMINE [Concomitant]
     Active Substance: DEXCHLORPHENIRAMINE MALEATE
     Indication: Allergy prophylaxis
     Dosage: 5 MILLIGRAM, PRN
     Route: 041
     Dates: start: 20191210
  29. POLARAMINE [Concomitant]
     Active Substance: DEXCHLORPHENIRAMINE MALEATE
     Indication: Allergic transfusion reaction

REACTIONS (1)
  - Febrile neutropenia [Recovered/Resolved]

NARRATIVE: CASE EVENT DATE: 20191211
